FAERS Safety Report 6554500-9 (Version None)
Quarter: 2010Q1

REPORT INFORMATION
  Report Type: 
  Country: None (occurrence: None)
  Receive Date: 20100127
  Receipt Date: 20100118
  Transmission Date: 20100710
  Serious: Yes (Hospitalization, Other)
  Sender: FDA-Public Use
  Company Number: FR-SANOFI-AVENTIS-2010SA003131

PATIENT
  Age: 54 Year
  Sex: Female

DRUGS (1)
  1. DESMOPRESSIN ACETATE [Suspect]
     Indication: VON WILLEBRAND'S DISEASE
     Route: 042

REACTIONS (4)
  - BRAIN OEDEMA [None]
  - COMA [None]
  - GRAND MAL CONVULSION [None]
  - HYPONATRAEMIA [None]
